FAERS Safety Report 21103932 (Version 1)
Quarter: 2022Q3

REPORT INFORMATION
  Report Type: Spontaneous
  Country: None (occurrence: US)
  Receive Date: 20220720
  Receipt Date: 20220720
  Transmission Date: 20221026
  Serious: No
  Sender: FDA-Public Use
  Company Number: US-Bio Products Laboratory Ltd-2131046

PATIENT
  Age: 3 Year
  Sex: Male

DRUGS (3)
  1. HUMAN IMMUNOGLOBULIN G [Suspect]
     Active Substance: HUMAN IMMUNOGLOBULIN G
     Indication: Kawasaki^s disease
     Route: 042
  2. ASPIRIN [Concomitant]
     Active Substance: ASPIRIN
  3. DEXTROSE [Concomitant]
     Active Substance: DEXTROSE

REACTIONS (2)
  - Dermatitis psoriasiform [Recovered/Resolved]
  - Off label use [Unknown]
